FAERS Safety Report 8016870-4 (Version None)
Quarter: 2012Q1

REPORT INFORMATION
  Report Type: 
  Country: None (occurrence: None)
  Receive Date: 20120102
  Receipt Date: 20111220
  Transmission Date: 20120608
  Serious: Yes (Other)
  Sender: FDA-Public Use
  Company Number: PHHY2011PL111932

PATIENT
  Age: 56 Year
  Sex: Male

DRUGS (8)
  1. MYCOPHENOLATE MOFETIL (CELLCEPT) [Concomitant]
     Dosage: 500 MG, BID
     Dates: end: 20080114
  2. CERTICAN [Suspect]
     Indication: RENAL TRANSPLANT
     Dosage: 0.5 MG, BID
     Dates: start: 20100218
  3. PREDNISONE [Concomitant]
     Dosage: 5 MG, UNK
     Dates: end: 20100217
  4. PREDNISONE [Concomitant]
     Dosage: 5 MG, UNK
  5. PROGRAF [Concomitant]
     Dosage: 1 MG, BID
  6. SIROLIMUS [Concomitant]
     Dosage: 3 MG, UNK
  7. CORTICOSTEROIDS [Concomitant]
  8. TACROLIMUS [Concomitant]
     Dosage: 2 MG, UNK

REACTIONS (5)
  - LIPID METABOLISM DISORDER [None]
  - GLOMERULAR FILTRATION RATE DECREASED [None]
  - BLOOD CREATININE INCREASED [None]
  - HYPERLIPIDAEMIA [None]
  - HYPERTENSION [None]
